FAERS Safety Report 8321159-X (Version None)
Quarter: 2012Q2

REPORT INFORMATION
  Report Type: 
  Country: None (occurrence: None)
  Receive Date: 20120430
  Receipt Date: 20120419
  Transmission Date: 20120825
  Serious: Yes (Hospitalization, Other)
  Sender: FDA-Public Use
  Company Number: CA-JNJFOC-20120409012

PATIENT
  Sex: Female
  Weight: 79 kg

DRUGS (2)
  1. AMITRIPTYLINE HCL [Concomitant]
     Indication: SLEEP DISORDER
     Dosage: HOUR OF SLEEP
     Route: 065
     Dates: start: 20110101
  2. REMICADE [Suspect]
     Indication: CROHN'S DISEASE
     Route: 042
     Dates: start: 20080101

REACTIONS (5)
  - POSTOPERATIVE WOUND INFECTION [None]
  - RENAL FAILURE [None]
  - ILEOSTOMY [None]
  - ANORECTAL OPERATION [None]
  - CELLULITIS [None]
